FAERS Safety Report 5425908-X (Version None)
Quarter: 2007Q3

REPORT INFORMATION
  Report Type: 
  Country: None (occurrence: None)
  Receive Date: 20070823
  Receipt Date: 20070823
  Transmission Date: 20080115
  Serious: Yes (Hospitalization)
  Sender: FDA-Public Use
  Company Number: None

PATIENT
  Sex: Female
  Weight: 78.2 kg

DRUGS (1)
  1. CISPLATIN [Suspect]
     Dosage: 70 MG

REACTIONS (2)
  - NEUTROPENIA [None]
  - PYREXIA [None]
